FAERS Safety Report 12600670 (Version 1)
Quarter: 2016Q3

REPORT INFORMATION
  Report Type: Spontaneous
  Country: US (occurrence: US)
  Receive Date: 20160727
  Receipt Date: 20160727
  Transmission Date: 20161109
  Serious: Yes (Other)
  Sender: FDA-Public Use
  Company Number: US-SUCAMPO PHARMACEUTICALS, INC.-SPI201600807

PATIENT

DRUGS (1)
  1. AMITIZA [Suspect]
     Active Substance: LUBIPROSTONE
     Indication: PRODUCT USED FOR UNKNOWN INDICATION

REACTIONS (7)
  - Activities of daily living impaired [Unknown]
  - Movement disorder [Unknown]
  - Hip arthroplasty [Unknown]
  - Arthralgia [Unknown]
  - Musculoskeletal disorder [Unknown]
  - Adverse reaction [Unknown]
  - Arthritis [Unknown]
